FAERS Safety Report 23996714 (Version 1)
Quarter: 2024Q2

REPORT INFORMATION
  Report Type: Report from Study
  Country: US (occurrence: US)
  Receive Date: 20240620
  Receipt Date: 20240620
  Transmission Date: 20240716
  Serious: No
  Sender: FDA-Public Use
  Company Number: US-AstraZeneca-CH-00645276A

PATIENT
  Sex: Female

DRUGS (1)
  1. STRENSIQ [Suspect]
     Active Substance: ASFOTASE ALFA
     Indication: Hypophosphatasia
     Dosage: UNK
     Route: 065

REACTIONS (10)
  - Oral candidiasis [Unknown]
  - Neuralgia [Unknown]
  - Decreased appetite [Unknown]
  - Nausea [Unknown]
  - Hypersensitivity [Unknown]
  - Asthenia [Unknown]
  - Increased tendency to bruise [Unknown]
  - Fibromyalgia [Unknown]
  - Symptom recurrence [Unknown]
  - Depression [Unknown]
